FAERS Safety Report 14213558 (Version 1)
Quarter: 2017Q4

REPORT INFORMATION
  Report Type: Spontaneous
  Country: IL (occurrence: IL)
  Receive Date: 20171122
  Receipt Date: 20171122
  Transmission Date: 20180321
  Serious: Yes (Congenital Anomaly)
  Sender: FDA-Public Use
  Company Number: IL-SCIEGEN PHARMACEUTICALS INC-2017SCILIT00696

PATIENT
  Age: 38 Week
  Sex: Female
  Weight: 3.7 kg

DRUGS (1)
  1. LAMOTRIGINE TABLETS [Suspect]
     Active Substance: LAMOTRIGINE
     Indication: FOETAL EXPOSURE DURING PREGNANCY
     Dosage: UNK UNK, QD
     Route: 064

REACTIONS (3)
  - Inguinal hernia [Recovered/Resolved]
  - Foetal exposure during pregnancy [None]
  - Developmental hip dysplasia [Recovered/Resolved]
